FAERS Safety Report 7457359-0 (Version None)
Quarter: 2011Q2

REPORT INFORMATION
  Report Type: 
  Country: None (occurrence: None)
  Receive Date: 20110504
  Receipt Date: 20100622
  Transmission Date: 20111010
  Serious: No
  Sender: FDA-Public Use
  Company Number: US-SANOFI-AVENTIS-2010SA036495

PATIENT
  Sex: Female

DRUGS (2)
  1. APIDRA [Suspect]
     Indication: DIABETES MELLITUS
     Dosage: ON SLIDING SCALE WITH MEALS
     Route: 058
     Dates: start: 20100101
  2. INSULIN DETEMIR [Concomitant]
     Route: 065

REACTIONS (3)
  - OVERDOSE [None]
  - DIZZINESS [None]
  - BLOOD GLUCOSE DECREASED [None]
